FAERS Safety Report 11320236 (Version 1)
Quarter: 2015Q3

REPORT INFORMATION
  Report Type: Spontaneous
  Country: US (occurrence: US)
  Receive Date: 20150729
  Receipt Date: 20150729
  Transmission Date: 20151125
  Serious: No
  Sender: FDA-Public Use
  Company Number: US-009507513-1507USA011281

PATIENT
  Age: 26 Year
  Sex: Female
  Weight: 158.73 kg

DRUGS (1)
  1. NEXPLANON [Suspect]
     Active Substance: ETONOGESTREL
     Indication: CONTRACEPTION
     Dosage: UNK, FREQUENCY: THREE YEARS
     Route: 059
     Dates: start: 20150121

REACTIONS (3)
  - Implant site hypoaesthesia [Unknown]
  - Device kink [Unknown]
  - Implant site pain [Unknown]

NARRATIVE: CASE EVENT DATE: 20150709
